FAERS Safety Report 17112418 (Version 1)
Quarter: 2019Q4

REPORT INFORMATION
  Report Type: Spontaneous
  Country: FR (occurrence: FR)
  Receive Date: 20191204
  Receipt Date: 20191204
  Transmission Date: 20200122
  Serious: Yes (Hospitalization)
  Sender: FDA-Public Use
  Company Number: FR-MYLANLABS-2019M1118247

PATIENT
  Age: 59 Year
  Sex: Female
  Weight: 66 kg

DRUGS (26)
  1. REVATIO [Suspect]
     Active Substance: SILDENAFIL CITRATE
     Indication: PULMONARY ARTERIAL HYPERTENSION
     Dosage: 60 MILLIGRAM, QD
     Route: 048
     Dates: start: 20190527, end: 20190605
  2. CORDARONE [Suspect]
     Active Substance: AMIODARONE HYDROCHLORIDE
     Indication: ATRIAL FIBRILLATION
     Dosage: 300 MILLIGRAM, QD
     Route: 042
     Dates: start: 20190529, end: 20190601
  3. PROPOFOL MYLAN 20 MG/ML, ?MULSION INJECTABLE (IV) [Suspect]
     Active Substance: PROPOFOL
     Indication: SEDATIVE THERAPY
     Dosage: 100 MILLIGRAM, QH (100 A 200 MG/H)
     Route: 042
     Dates: start: 20190527, end: 20190530
  4. NEORAL [Suspect]
     Active Substance: CYCLOSPORINE
     Indication: PROPHYLAXIS AGAINST TRANSPLANT REJECTION
     Dosage: 400 MILLIGRAM, QD (2-0-2)
     Route: 048
     Dates: start: 20190529
  5. ADRENALINE AGUETTANT [Suspect]
     Active Substance: EPINEPHRINE
     Indication: CIRCULATORY COLLAPSE
     Dosage: 0.5 MICROGRAM/KILOGRAM, QMINUTE
     Route: 042
     Dates: start: 20190527, end: 20190528
  6. HYDROCORTISONE UPJOHN [Suspect]
     Active Substance: HYDROCORTISONE
     Indication: ADRENAL INSUFFICIENCY
     Dosage: 150 MILLIGRAM, QD
     Route: 042
     Dates: start: 20190607
  7. INEXIUM                            /01479302/ [Suspect]
     Active Substance: ESOMEPRAZOLE MAGNESIUM
     Indication: GASTROOESOPHAGEAL REFLUX DISEASE
     Dosage: 20 MILLIGRAM, QD (1 LE SOIR)
     Route: 048
     Dates: start: 20190527
  8. STILNOX [Suspect]
     Active Substance: ZOLPIDEM TARTRATE
     Indication: SLEEP DISORDER
     Dosage: 10 MILLIGRAM
     Route: 048
     Dates: start: 20190520, end: 20190526
  9. PRAVASTATIN. [Suspect]
     Active Substance: PRAVASTATIN
     Indication: HYPERCHOLESTEROLAEMIA
     Dosage: 40 MILLIGRAM, QD (0-0-1)
     Route: 048
     Dates: start: 20190527, end: 20190625
  10. CORDARONE [Suspect]
     Active Substance: AMIODARONE HYDROCHLORIDE
     Indication: ATRIAL FIBRILLATION
     Dosage: 200 MILLIGRAM, QD
     Route: 048
     Dates: start: 2008, end: 20190526
  11. LASILIX                            /00032601/ [Suspect]
     Active Substance: FUROSEMIDE
     Indication: HYPERTROPHIC CARDIOMYOPATHY
     Dosage: 40 MILLIGRAM, QD
     Route: 048
     Dates: start: 2008, end: 20190526
  12. LOVENOX [Suspect]
     Active Substance: ENOXAPARIN SODIUM
     Indication: THROMBOSIS PROPHYLAXIS
     Dosage: 8000 INTERNATIONAL UNIT, QD
     Route: 058
     Dates: start: 20190604, end: 20190614
  13. REMIFENTANIL MYLAN [Suspect]
     Active Substance: REMIFENTANIL
     Indication: SEDATIVE THERAPY
     Dosage: 15 MICROGRAM/KILOGRAM, QH
     Route: 042
     Dates: start: 20190527, end: 20190530
  14. NORADRENALINE MYLAN [Suspect]
     Active Substance: NOREPINEPHRINE\NOREPINEPHRINE BITARTRATE
     Indication: CIRCULATORY COLLAPSE
     Dosage: 1 MICROGRAM/KILOGRAM, QMINUTE
     Route: 042
     Dates: start: 20190527, end: 20190612
  15. CORTANCYL [Suspect]
     Active Substance: PREDNISONE
     Indication: PROPHYLAXIS AGAINST TRANSPLANT REJECTION
     Dosage: 50 MILLIGRAM, QD
     Route: 048
     Dates: start: 20190527
  16. DOBUTAMINE PANPHARMA [Suspect]
     Active Substance: DOBUTAMINE HYDROCHLORIDE
     Indication: CIRCULATORY COLLAPSE
     Dosage: 7 MICROGRAM/KILOGRAM, QMINUTE
     Route: 042
     Dates: start: 20190527, end: 20190530
  17. ENTRESTO [Suspect]
     Active Substance: SACUBITRIL\VALSARTAN
     Indication: HYPERTROPHIC CARDIOMYOPATHY
     Dosage: 2 DOSAGE FORM, QD (1-0-1)
     Route: 048
     Dates: start: 20181220, end: 20190526
  18. ALDACTONE [Suspect]
     Active Substance: SPIRONOLACTONE
     Indication: HYPERTROPHIC CARDIOMYOPATHY
     Dosage: 25 MILLIGRAM, QD
     Route: 048
     Dates: start: 201902, end: 20190526
  19. ZYLORIC [Suspect]
     Active Substance: ALLOPURINOL
     Indication: HYPERURICAEMIA
     Dosage: 100 MILLIGRAM, QD (0-0-1)
     Route: 048
     Dates: start: 201812, end: 20190526
  20. MYFORTIC [Suspect]
     Active Substance: MYCOPHENOLATE SODIUM
     Indication: PROPHYLAXIS AGAINST TRANSPLANT REJECTION
     Dosage: 1440 MILLIGRAM, QD (720-0-720)
     Route: 048
     Dates: start: 20190609, end: 20190621
  21. VALACYCLOVIR [Suspect]
     Active Substance: VALACYCLOVIR HYDROCHLORIDE
     Indication: INFECTION PROPHYLAXIS
     Dosage: 1000 MILLIGRAM, QD (1-0-1)
     Route: 048
     Dates: start: 20190603
  22. ELIQUIS [Suspect]
     Active Substance: APIXABAN
     Indication: ATRIAL FIBRILLATION
     Dosage: 10 MILLIGRAM, QD (1-0-1)
     Route: 048
     Dates: start: 201812, end: 20190526
  23. CELLCEPT [Suspect]
     Active Substance: MYCOPHENOLATE MOFETIL\MYCOPHENOLATE MOFETIL HYDROCHLORIDE
     Indication: PROPHYLAXIS AGAINST TRANSPLANT REJECTION
     Dosage: 3000 MILLIGRAM, QD
     Route: 048
     Dates: start: 20190529, end: 20190608
  24. TAHOR [Suspect]
     Active Substance: ATORVASTATIN CALCIUM
     Indication: HYPERCHOLESTEROLAEMIA
     Dosage: 10 MILLIGRAM, QD
     Route: 048
     Dates: start: 201812, end: 20190526
  25. BACTRIM [Suspect]
     Active Substance: SULFAMETHOXAZOLE\TRIMETHOPRIM
     Indication: INFECTION PROPHYLAXIS
     Dosage: 1 DOSAGE FORM, QD (1 LE SOIR)
     Route: 048
     Dates: start: 20190529
  26. LEVOTHYROX [Suspect]
     Active Substance: LEVOTHYROXINE
     Indication: HYPOTHYROIDISM
     Dosage: 106.25 MICROGRAM, QD
     Route: 048
     Dates: start: 2008

REACTIONS (1)
  - Interstitial lung disease [Recovering/Resolving]

NARRATIVE: CASE EVENT DATE: 20190618
